FAERS Safety Report 7900776 (Version 13)
Quarter: 2013Q3

REPORT INFORMATION
  Report Type: Spontaneous
  Country: US (occurrence: US)
  Receive Date: 20110415
  Receipt Date: 20130719
  Transmission Date: 20140515
  Serious: Yes (Hospitalization, Congenital Anomaly, Other)
  Sender: FDA-Public Use
  Company Number: US-PFIZER INC-2011077324

PATIENT
  Sex: Male
  Weight: 2.6 kg

DRUGS (23)
  1. EFFEXOR XR [Suspect]
     Indication: ANXIETY
     Dosage: 75 MG, UNK
     Route: 064
  2. EFFEXOR [Suspect]
     Dosage: UNK
     Route: 064
  3. ZOLOFT [Suspect]
     Indication: ANXIETY
     Dosage: UNK
     Route: 064
     Dates: start: 200311
  4. ZOLOFT [Suspect]
     Indication: DEPRESSION
     Dosage: 50 MG, UNK
     Route: 064
  5. ZOLOFT [Suspect]
     Dosage: 100 MG, UNK
     Route: 064
  6. ZOLOFT [Suspect]
     Dosage: 50 MG, 1X/DAY
     Route: 064
     Dates: start: 20040925
  7. SERTRALINE HCL [Suspect]
     Dosage: UNK
     Route: 064
     Dates: start: 200311
  8. VENLAFAXINE HCL [Suspect]
     Dosage: UNK
     Route: 064
  9. PRENATAL VITAMINS [Concomitant]
     Dosage: UNK
     Route: 064
  10. FOLIC ACID [Concomitant]
     Dosage: UNK
     Route: 064
  11. SUDAFED [Concomitant]
     Indication: BRONCHITIS
     Dosage: UNK
     Route: 064
  12. SUDAFED [Concomitant]
     Indication: SINUSITIS
  13. ATIVAN [Concomitant]
     Dosage: UNK
     Route: 064
  14. DIFLUCAN [Concomitant]
     Dosage: UNK
     Route: 064
  15. AMOXICILLIN [Concomitant]
     Dosage: UNK
     Route: 064
  16. GUAIFENEX [Concomitant]
     Dosage: UNK
     Route: 064
  17. AUGMENTIN XR [Concomitant]
     Dosage: UNK
     Route: 064
  18. LORAZEPAM [Concomitant]
     Dosage: UNK
     Route: 064
  19. HYDROXYZINE [Concomitant]
     Dosage: UNK
     Route: 064
  20. ZITHROMAX [Concomitant]
     Dosage: UNK
     Route: 064
  21. RETIN A MICRO GEL [Concomitant]
     Dosage: UNK
     Route: 064
  22. AMOX TR K CLV [Concomitant]
     Dosage: UNK
     Route: 064
  23. Q-BID-DM [Concomitant]
     Dosage: UNK
     Route: 064

REACTIONS (54)
  - Foetal exposure during pregnancy [Unknown]
  - Double outlet right ventricle [Unknown]
  - Respiratory distress [Recovered/Resolved]
  - Gastrooesophageal reflux disease [Unknown]
  - Ventricular hypoplasia [Unknown]
  - Ventricular septal defect [Unknown]
  - Coarctation of the aorta [Unknown]
  - Apnoea [Unknown]
  - Atrial septal defect [Recovered/Resolved]
  - Pyelocaliectasis [Unknown]
  - Tricuspid valve incompetence [Unknown]
  - Haematochezia [Unknown]
  - Hypoxia [Recovered/Resolved]
  - Cyanosis [Recovered/Resolved]
  - Bronchiolitis [Unknown]
  - Failure to thrive [Recovered/Resolved]
  - Pulmonary valve stenosis [Unknown]
  - Cardiopulmonary failure [Unknown]
  - Pulmonary hypertension [Unknown]
  - Diaphragmatic paralysis [Unknown]
  - Mitral valve stenosis [Unknown]
  - Cerebral ischaemia [Unknown]
  - Subdural haematoma [Unknown]
  - Cerebrovascular accident [Unknown]
  - Heart valve incompetence [Unknown]
  - Intestinal ischaemia [Unknown]
  - Talipes [Unknown]
  - Aortic valve incompetence [Unknown]
  - Mitral valve atresia [Unknown]
  - Cardiomegaly [Recovering/Resolving]
  - Sinus bradycardia [Unknown]
  - Atelectasis [Unknown]
  - Purulent discharge [Recovered/Resolved]
  - Dacryostenosis acquired [Recovered/Resolved]
  - Developmental delay [Unknown]
  - Dysphagia [Recovered/Resolved]
  - Upper respiratory tract infection [Recovering/Resolving]
  - Sinus arrhythmia [Unknown]
  - Supraventricular tachycardia [Unknown]
  - Muscle spasticity [Unknown]
  - Otitis media [Recovered/Resolved]
  - Gastroenteritis rotavirus [Unknown]
  - Nodal rhythm [Unknown]
  - Ascites [Unknown]
  - Thrombosis [Unknown]
  - Cardiac arrest [Unknown]
  - Cardiac failure congestive [Unknown]
  - Hypersensitivity [Unknown]
  - Constipation [Unknown]
  - Decubitus ulcer [Unknown]
  - Dehydration [Unknown]
  - Irritability [Unknown]
  - Fatigue [Unknown]
  - Myocardial infarction [Unknown]
